FAERS Safety Report 11175034 (Version 1)
Quarter: 2015Q2

REPORT INFORMATION
  Report Type: Spontaneous
  Country: US (occurrence: US)
  Receive Date: 20150609
  Receipt Date: 20150609
  Transmission Date: 20150821
  Serious: No
  Sender: FDA-Public Use
  Company Number: US-PFIZER INC-2015189584

PATIENT
  Age: 31 Year
  Sex: Male
  Weight: 79 kg

DRUGS (1)
  1. VIAGRA [Suspect]
     Active Substance: SILDENAFIL CITRATE
     Dosage: ONE PILL EVERY OTHER DAY
     Dates: start: 201502

REACTIONS (1)
  - Skin odour abnormal [Not Recovered/Not Resolved]
